FAERS Safety Report 7943845-3 (Version None)
Quarter: 2011Q4

REPORT INFORMATION
  Report Type: 
  Country: None (occurrence: None)
  Receive Date: 20111128
  Receipt Date: 20111121
  Transmission Date: 20120403
  Serious: Yes (Death, Hospitalization)
  Sender: FDA-Public Use
  Company Number: GB-ROCHE-796997

PATIENT
  Age: 57 Year

DRUGS (7)
  1. DEXAMETHASONE [Concomitant]
  2. OXALIPLATIN [Concomitant]
  3. AVASTIN [Suspect]
     Indication: COLON CANCER METASTATIC
     Route: 042
     Dates: start: 20110721, end: 20110721
  4. DOMPERIDONE [Concomitant]
  5. ACETAMINOPHEN [Concomitant]
  6. FLUOROURACIL [Concomitant]
  7. FERROUS SULFATE TAB [Concomitant]

REACTIONS (4)
  - SEPSIS [None]
  - INTESTINAL PERFORATION [None]
  - MALAISE [None]
  - ABDOMINAL PAIN [None]
